FAERS Safety Report 9835426 (Version 1)
Quarter: 2014Q1

REPORT INFORMATION
  Report Type: Spontaneous
  Country: US (occurrence: US)
  Receive Date: 20140122
  Receipt Date: 20140122
  Transmission Date: 20141002
  Serious: No
  Sender: FDA-Public Use
  Company Number: US-BRISTOL-MYERS SQUIBB COMPANY-19589530

PATIENT
  Age: 70 Year
  Sex: Male
  Weight: 95.24 kg

DRUGS (7)
  1. ELIQUIS [Suspect]
     Indication: ATRIAL FIBRILLATION
  2. ATENOLOL [Concomitant]
  3. LOSARTAN POTASSIUM + HCTZ [Concomitant]
     Dosage: LOSARTAN POTASSIUM + HCTZ 100-12.5
  4. COQ10 [Concomitant]
  5. VITAMIN D [Concomitant]
     Dosage: VITAMIN D SUPPLEMENT
  6. LEVOTHYROXINE [Concomitant]
  7. SIMVASTATIN [Concomitant]

REACTIONS (2)
  - Local swelling [Unknown]
  - Testicular swelling [Unknown]
